FAERS Safety Report 25473992 (Version 1)
Quarter: 2025Q2

REPORT INFORMATION
  Report Type: Spontaneous
  Country: US (occurrence: None)
  Receive Date: 20250618
  Receipt Date: 20250618
  Transmission Date: 20250717
  Serious: No
  Sender: FDA-CTU
  Company Number: None

PATIENT

DRUGS (1)
  1. TOLTERODINE [Suspect]
     Active Substance: TOLTERODINE

REACTIONS (2)
  - Feeling jittery [None]
  - Drug intolerance [None]
